FAERS Safety Report 4544390-8 (Version None)
Quarter: 2005Q1

REPORT INFORMATION
  Report Type: 
  Country: None (occurrence: None)
  Receive Date: 20050104
  Receipt Date: 20041221
  Transmission Date: 20050727
  Serious: Yes (Hospitalization)
  Sender: FDA-Public Use
  Company Number: US-MERCK-0412USA02636

PATIENT
  Age: 46 Year
  Sex: Male

DRUGS (23)
  1. ATROVENT [Concomitant]
     Route: 065
  2. PRIMAXIN [Suspect]
     Indication: CITROBACTER INFECTION
     Route: 042
     Dates: start: 20041207
  3. PRIMAXIN [Suspect]
     Indication: ENTEROBACTER INFECTION
     Route: 042
     Dates: start: 20041207
  4. MORPHINE SULFATE [Concomitant]
     Route: 042
  5. ATROPINE [Concomitant]
     Route: 065
  6. HYDROCORTISONE [Concomitant]
     Route: 042
  7. DAPTOMYCIN [Concomitant]
     Route: 065
     Dates: end: 20041207
  8. TOBRAMYCIN [Concomitant]
     Route: 042
     Dates: end: 20041207
  9. FLUCONAZOLE [Concomitant]
     Route: 042
  10. PROTONIX [Concomitant]
     Route: 042
     Dates: end: 20041207
  11. ATIVAN [Concomitant]
     Route: 051
  12. FLAGYL [Concomitant]
     Route: 042
  13. DOPAMINE HYDROCHLORIDE [Concomitant]
     Route: 065
     Dates: end: 20041207
  14. ALBUTEROL [Concomitant]
     Route: 065
  15. PHENYLEPHRINE [Concomitant]
     Route: 065
  16. AMINO ACIDS (UNSPECIFIED) AND CARBOHYDRATES (UNSPECIFIED) AND ELECTROL [Concomitant]
     Route: 065
     Dates: end: 20041207
  17. ANTIMICROBIAL (UNSPECIFIED) [Concomitant]
     Route: 065
  18. ZYVOX [Concomitant]
     Route: 061
     Dates: end: 20041207
  19. ZOSYN [Concomitant]
     Route: 065
     Dates: end: 20041207
  20. CEFEPIME [Concomitant]
     Route: 065
     Dates: start: 20041207
  21. SEPTRA [Concomitant]
     Route: 065
     Dates: start: 20041206, end: 20041207
  22. LEVAQUIN [Concomitant]
     Route: 065
     Dates: start: 20041206, end: 20041207
  23. INSULIN [Concomitant]
     Route: 065

REACTIONS (1)
  - HEART RATE DECREASED [None]
